FAERS Safety Report 5339969-X (Version None)
Quarter: 2007Q2

REPORT INFORMATION
  Report Type: 
  Country: None (occurrence: None)
  Receive Date: 20070529
  Receipt Date: 20070517
  Transmission Date: 20071010
  Serious: Yes (Other)
  Sender: FDA-Public Use
  Company Number: 2007321902

PATIENT
  Age: 46 Year
  Sex: Female
  Weight: 72.5755 kg

DRUGS (4)
  1. NICOTINE [Suspect]
     Indication: SMOKING CESSATION THERAPY
     Dosage: TRANSDERMAL
     Route: 062
     Dates: start: 20070309, end: 20070503
  2. DEPO-PROVERA SUSPENSION/INJ [Suspect]
     Indication: CONTRACEPTION
     Dosage: Q 3  MONTHS, INTRAMUSCULAR
     Route: 030
     Dates: start: 20050101
  3. SYNTHROID [Concomitant]
  4. CALCIUM (CALCIUM) [Concomitant]

REACTIONS (1)
  - BLOOD PRESSURE INCREASED [None]
